FAERS Safety Report 19513808 (Version 2)
Quarter: 2021Q3

REPORT INFORMATION
  Report Type: Spontaneous
  Country: US (occurrence: US)
  Receive Date: 20210709
  Receipt Date: 20210813
  Transmission Date: 20211014
  Serious: Yes (Life-Threatening, Hospitalization, Other)
  Sender: FDA-Public Use
  Company Number: US-UNITED THERAPEUTICS-UNT-2021-010018

PATIENT
  Age: 2 Year
  Sex: Female
  Weight: 12.7 kg

DRUGS (4)
  1. SILDENAFIL CITRATE. [Concomitant]
     Active Substance: SILDENAFIL CITRATE
     Indication: PRODUCT USED FOR UNKNOWN INDICATION
     Dosage: UNK
     Route: 065
  2. REMODULIN [Suspect]
     Active Substance: TREPROSTINIL
     Dosage: 0.049 ?G/KG, CONTINUING (0.016 ML PER HOUR)
     Route: 058
     Dates: start: 202105
  3. REMODULIN [Suspect]
     Active Substance: TREPROSTINIL
     Indication: PULMONARY ARTERIAL HYPERTENSION
     Dosage: UNK, CONTINUING
     Route: 058
     Dates: start: 20210519
  4. TRACLEER [Concomitant]
     Active Substance: BOSENTAN
     Indication: PULMONARY HYPERTENSION
     Dosage: 32 MG, BID
     Route: 048

REACTIONS (5)
  - Cardiac arrest [Unknown]
  - Respiratory arrest [Unknown]
  - Pulmonary arterial pressure increased [Unknown]
  - Drug ineffective [Unknown]
  - Respiratory distress [Unknown]

NARRATIVE: CASE EVENT DATE: 202105
